FAERS Safety Report 9156098 (Version 1)
Quarter: 2013Q1

REPORT INFORMATION
  Report Type: Report from Study
  Country: JP (occurrence: JP)
  Receive Date: 20130311
  Receipt Date: 20130311
  Transmission Date: 20140127
  Serious: Yes (Other)
  Sender: FDA-Public Use
  Company Number: JP-009507513-1302JPN000906

PATIENT
  Age: 62 Year
  Sex: Male

DRUGS (18)
  1. EMEND [Suspect]
     Indication: PROPHYLAXIS OF NAUSEA AND VOMITING
     Dosage: 125 MG, QD
     Route: 048
     Dates: start: 20110720, end: 20110720
  2. EMEND [Suspect]
     Dosage: 80 UNK, UNK
     Route: 048
     Dates: start: 20110721, end: 20110722
  3. EMEND [Suspect]
     Dosage: 125 UNK, UNK
     Route: 048
     Dates: start: 20110819, end: 20110819
  4. EMEND [Suspect]
     Dosage: 80 UNK, UNK
     Route: 048
     Dates: start: 20110820, end: 20110821
  5. CISPLATIN [Suspect]
     Indication: OESOPHAGEAL CARCINOMA
     Dosage: UNK
     Route: 042
     Dates: start: 20110720, end: 20110720
  6. CISPLATIN [Suspect]
     Dosage: UNK
     Route: 042
     Dates: start: 20110819, end: 20110819
  7. FLUOROURACIL [Suspect]
     Indication: OESOPHAGEAL CARCINOMA
     Dosage: UNK
     Route: 042
     Dates: start: 20110720, end: 20110724
  8. FLUOROURACIL [Suspect]
     Dosage: UNK
     Route: 042
     Dates: start: 20110819, end: 20110823
  9. DECADRON (DEXAMETHASONE SODIUM PHOSPHATE) [Concomitant]
     Dosage: UNK
     Dates: start: 20110720, end: 20110720
  10. DECADRON (DEXAMETHASONE SODIUM PHOSPHATE) [Concomitant]
     Dosage: UNK
     Dates: start: 20110721, end: 20110724
  11. DECADRON (DEXAMETHASONE SODIUM PHOSPHATE) [Concomitant]
     Dosage: UNK
     Dates: start: 20110819, end: 20110819
  12. DECADRON (DEXAMETHASONE SODIUM PHOSPHATE) [Concomitant]
     Dosage: UNK
     Dates: start: 20110820, end: 20110823
  13. ALOXI [Concomitant]
     Dosage: UNK
     Dates: start: 20110720, end: 20110720
  14. ALOXI [Concomitant]
     Dosage: UNK
     Dates: start: 20110819, end: 20110819
  15. PRIMPERAN [Concomitant]
     Dosage: UNK
     Dates: start: 20110720, end: 20110724
  16. PRIMPERAN [Concomitant]
     Dosage: UNK
     Dates: start: 20110819, end: 20110823
  17. TAKEPRON [Concomitant]
     Dosage: UNK
     Dates: start: 20110720, end: 20110911
  18. CRAVIT [Concomitant]
     Indication: ADRENOMEGALY
     Dosage: UNK
     Dates: start: 20110804, end: 20110810

REACTIONS (3)
  - Blood creatinine increased [Recovered/Resolved]
  - Device related infection [Recovered/Resolved]
  - Stomatitis [Unknown]
